FAERS Safety Report 13628418 (Version 1)
Quarter: 2017Q2

REPORT INFORMATION
  Report Type: Spontaneous
  Country: IN (occurrence: IN)
  Receive Date: 20170607
  Receipt Date: 20170607
  Transmission Date: 20170830
  Serious: Yes (Hospitalization)
  Sender: FDA-Public Use
  Company Number: IN-IMPAX LABORATORIES, INC-2017-IPXL-01629

PATIENT
  Age: 13 Year
  Sex: Female

DRUGS (4)
  1. PHENYTOIN. [Suspect]
     Active Substance: PHENYTOIN
     Indication: GENERALISED TONIC-CLONIC SEIZURE
     Dosage: 300 MG, DAILY
     Route: 048
  2. DIVALPROEX SODIUM ER [Suspect]
     Active Substance: DIVALPROEX SODIUM
     Indication: GENERALISED TONIC-CLONIC SEIZURE
     Dosage: 1250 MG, DAILY; IN TWO DIVIDED DOSES
     Route: 048
  3. DIVALPROEX SODIUM ER [Suspect]
     Active Substance: DIVALPROEX SODIUM
     Indication: MYOCLONIC EPILEPSY
  4. PHENYTOIN. [Suspect]
     Active Substance: PHENYTOIN
     Indication: MYOCLONIC EPILEPSY

REACTIONS (3)
  - Coma [Recovered/Resolved]
  - Hyperammonaemia [Recovered/Resolved]
  - Hyperlactacidaemia [Recovered/Resolved]
